FAERS Safety Report 7774672-8 (Version None)
Quarter: 2011Q3

REPORT INFORMATION
  Report Type: 
  Country: None (occurrence: None)
  Receive Date: 20110923
  Receipt Date: 20110912
  Transmission Date: 20111222
  Serious: Yes (Other)
  Sender: FDA-Public Use
  Company Number: PL-SANOFI-AVENTIS-2011SA060876

PATIENT
  Age: 71 Year
  Sex: Female

DRUGS (5)
  1. CARBAMAZEPINE [Interacting]
     Route: 065
  2. FUROSEMIDE [Suspect]
     Route: 065
  3. NSAID'S [Interacting]
     Route: 065
  4. DIGOXIN [Interacting]
     Route: 065
  5. LITHIUM CARBONATE [Interacting]
     Route: 065

REACTIONS (6)
  - HYPOTONIA [None]
  - ASTHENIA [None]
  - BRADYCARDIA [None]
  - DRUG INTERACTION [None]
  - DRUG LEVEL INCREASED [None]
  - MENTAL IMPAIRMENT [None]
